FAERS Safety Report 4520722-1 (Version None)
Quarter: 2004Q4

REPORT INFORMATION
  Report Type: 
  Country: None (occurrence: None)
  Receive Date: 20041203
  Receipt Date: 20041103
  Transmission Date: 20050328
  Serious: Yes (Death)
  Sender: FDA-Public Use
  Company Number: STA-AE-04-MTX-541

PATIENT
  Age: 67 Year
  Sex: Female

DRUGS (12)
  1. RHEUMATREX [Suspect]
     Indication: RHEUMATOID ARTHRITIS
     Dosage: 6 MG 1X PER 1 WK, ORAL
     Route: 048
     Dates: start: 20020801, end: 20040101
  2. RHEUMATREX [Suspect]
     Indication: RHEUMATOID ARTHRITIS
     Dosage: 8 MG 1X PER 1 WK, ORAL
     Route: 048
     Dates: start: 20040101, end: 20040901
  3. CALCITROL (CALCIUM CARBONATE/ERGOCALCIFEROL/RETINOL) [Concomitant]
  4. EPINASTINE HYDROCHLORIDE (EPINASTINE HYDROCHLORIDE) [Concomitant]
  5. LOXONIN (LOXOPROFEN SODIUM) [Concomitant]
  6. MEFENAMIC ACID [Concomitant]
  7. NORVASC [Concomitant]
  8. PREDNISOLONE [Concomitant]
  9. DIOVAN [Concomitant]
  10. LEUCOVORIN CALCIUM [Concomitant]
  11. KARY UNI (PIRENOXINE) [Concomitant]
  12. OMEPRAZOLE [Concomitant]

REACTIONS (7)
  - ABNORMAL CHEST SOUND [None]
  - ALOPECIA [None]
  - INTERSTITIAL LUNG DISEASE [None]
  - PARAESTHESIA [None]
  - RESPIRATORY FAILURE [None]
  - STOMATITIS [None]
  - WHITE BLOOD CELL COUNT DECREASED [None]
